FAERS Safety Report 9398143 (Version 1)
Quarter: 2013Q3

REPORT INFORMATION
  Report Type: Report from Study
  Country: US (occurrence: US)
  Receive Date: 20130712
  Receipt Date: 20130712
  Transmission Date: 20140515
  Serious: Yes (Other)
  Sender: FDA-Public Use
  Company Number: US-ABBOTT-13P-163-1117383-00

PATIENT
  Sex: Female

DRUGS (5)
  1. HUMIRA [Suspect]
     Indication: PSORIATIC ARTHROPATHY
     Dates: start: 2008, end: 201301
  2. HUMIRA [Suspect]
     Dates: start: 201302
  3. ZOLOFT [Concomitant]
     Indication: ANXIETY
     Route: 048
  4. PRENATAL VITAMIN WITH VITAMIN D [Concomitant]
     Indication: VITAMIN SUPPLEMENTATION
     Route: 048
  5. FISH OIL [Concomitant]
     Indication: SUPPLEMENTATION THERAPY
     Route: 048

REACTIONS (2)
  - Blighted ovum [Unknown]
  - Cervical dysplasia [Unknown]
